FAERS Safety Report 23875807 (Version 2)
Quarter: 2024Q2

REPORT INFORMATION
  Report Type: Spontaneous
  Country: US (occurrence: US)
  Receive Date: 20240520
  Receipt Date: 20240628
  Transmission Date: 20240716
  Serious: No
  Sender: FDA-Public Use
  Company Number: US-SA-SAC20240514000219

PATIENT
  Age: 4 Year
  Sex: Male

DRUGS (1)
  1. DUPIXENT [Suspect]
     Active Substance: DUPILUMAB
     Indication: Dermatitis atopic
     Dosage: 300 MG, Q4W
     Route: 065
     Dates: start: 202403, end: 2024

REACTIONS (2)
  - Hypersensitivity [Unknown]
  - Rash [Unknown]

NARRATIVE: CASE EVENT DATE: 20240101
